FAERS Safety Report 8591766-8 (Version None)
Quarter: 2012Q3

REPORT INFORMATION
  Report Type: 
  Country: None (occurrence: None)
  Receive Date: 20120814
  Receipt Date: 20120809
  Transmission Date: 20120928
  Serious: Yes (Hospitalization, Other)
  Sender: FDA-Public Use
  Company Number: PHHY2012BR069662

PATIENT
  Sex: Female

DRUGS (1)
  1. FORMOTEROL FUMARATE [Suspect]
     Indication: PNEUMONIA
     Dosage: 01 DF, BID

REACTIONS (3)
  - BLOOD PRESSURE FLUCTUATION [None]
  - CHEST PAIN [None]
  - DYSPNOEA [None]
